FAERS Safety Report 5920481-1 (Version None)
Quarter: 2008Q4

REPORT INFORMATION
  Report Type: 
  Country: None (occurrence: None)
  Receive Date: 20081016
  Receipt Date: 20081015
  Transmission Date: 20090506
  Serious: Yes (Other)
  Sender: FDA-Public Use
  Company Number: A0743520A

PATIENT
  Age: 58 Year
  Sex: Female

DRUGS (3)
  1. LOVAZA [Suspect]
     Indication: BLOOD TRIGLYCERIDES INCREASED
     Dosage: 2G TWICE PER DAY
     Route: 048
     Dates: start: 20080601
  2. NORVASC [Concomitant]
  3. FEMHRT [Concomitant]

REACTIONS (2)
  - CHOKING [None]
  - DYSPHAGIA [None]
